FAERS Safety Report 5156471-9 (Version None)
Quarter: 2006Q4

REPORT INFORMATION
  Report Type: 
  Country: None (occurrence: None)
  Receive Date: 20061113
  Receipt Date: 20061031
  Transmission Date: 20070319
  Serious: Yes (Death, Life-Threatening, Hospitalization)
  Sender: FDA-Public Use
  Company Number: 2006133114

PATIENT
  Age: 44 Year
  Sex: Male
  Weight: 136.0791 kg

DRUGS (5)
  1. NORVASC [Suspect]
     Indication: HYPERTENSION
     Dosage: 10 MG (10 MG, QD)
     Dates: end: 20060714
  2. DANTROLENE SODIUM [Suspect]
     Indication: NEUROLEPTIC MALIGNANT SYNDROME
     Dates: start: 20060711, end: 20060713
  3. DANTROLENE SODIUM [Suspect]
     Indication: NEUROLEPTIC MALIGNANT SYNDROME
     Dates: start: 20060713, end: 20060714
  4. GLUCOPHAGE [Concomitant]
  5. BROMOCRIPTINE MESYLATE [Concomitant]

REACTIONS (19)
  - ABASIA [None]
  - APALLIC SYNDROME [None]
  - BLOOD PRESSURE ABNORMAL [None]
  - BRAIN DAMAGE [None]
  - BRAIN DEATH [None]
  - CARDIO-RESPIRATORY ARREST [None]
  - COMA [None]
  - DRUG INTERACTION [None]
  - HEART RATE INCREASED [None]
  - HEART RATE IRREGULAR [None]
  - INFECTION [None]
  - NEUROLEPTIC MALIGNANT SYNDROME [None]
  - OVERDOSE [None]
  - PARANOIA [None]
  - PERSONALITY CHANGE [None]
  - PNEUMONIA [None]
  - PSYCHOTIC DISORDER [None]
  - TREMOR [None]
  - VENTRICULAR FIBRILLATION [None]
